FAERS Safety Report 10506754 (Version 1)
Quarter: 2014Q3

REPORT INFORMATION
  Report Type: Spontaneous
  Country: US (occurrence: None)
  Receive Date: 20140915
  Receipt Date: 20140915
  Transmission Date: 20150326
  Serious: Yes (Other)
  Sender: FDA-Public Use
  Company Number: 2013-US-004758

PATIENT
  Sex: Male

DRUGS (1)
  1. XYREM [Suspect]
     Active Substance: SODIUM OXYBATE
     Indication: PRODUCT USED FOR UNKNOWN INDICATION
     Dosage: 9G OR 4.5G ORAL
     Route: 048
     Dates: start: 2012

REACTIONS (4)
  - Sleep-related eating disorder [None]
  - Sleep talking [None]
  - Self-injurious ideation [None]
  - Somnambulism [None]
